FAERS Safety Report 12199141 (Version 1)
Quarter: 2016Q1

REPORT INFORMATION
  Report Type: Spontaneous
  Country: US (occurrence: None)
  Receive Date: 20160321
  Receipt Date: 20160321
  Transmission Date: 20160526
  Serious: No
  Sender: FDA-Public Use
  Company Number: None

PATIENT
  Age: 12 Year
  Sex: Female
  Weight: 81.65 kg

DRUGS (1)
  1. CITALOPRAM [Suspect]
     Active Substance: CITALOPRAM HYDROBROMIDE
     Indication: MIGRAINE
     Dosage: 1 AND 1/2 PILL ONCE DAILY TAKEN BY MOUTH
     Route: 048
     Dates: start: 20160208, end: 20160317

REACTIONS (7)
  - Sleep disorder [None]
  - Dizziness [None]
  - Abnormal behaviour [None]
  - Asthenia [None]
  - Rash [None]
  - Migraine [None]
  - Fatigue [None]

NARRATIVE: CASE EVENT DATE: 20160201
